FAERS Safety Report 23795271 (Version 1)
Quarter: 2024Q2

REPORT INFORMATION
  Report Type: Spontaneous
  Country: JP (occurrence: JP)
  Receive Date: 20240429
  Receipt Date: 20240429
  Transmission Date: 20240716
  Serious: Yes (Other)
  Sender: FDA-Public Use
  Company Number: JP-PFIZER INC-PV202400053607

PATIENT
  Age: 7 Decade
  Sex: Male

DRUGS (1)
  1. SULFASALAZINE [Suspect]
     Active Substance: SULFASALAZINE
     Indication: Palindromic rheumatism
     Dosage: 1000 MG, DAILY

REACTIONS (2)
  - Serositis [Recovered/Resolved]
  - Off label use [Unknown]
